FAERS Safety Report 25217013 (Version 1)
Quarter: 2025Q2

REPORT INFORMATION
  Report Type: Spontaneous
  Country: GB (occurrence: GB)
  Receive Date: 20250419
  Receipt Date: 20250419
  Transmission Date: 20250717
  Serious: Yes (Life-Threatening, Hospitalization)
  Sender: HETERO
  Company Number: GB-AMAROX PHARMA-AMR2025GB01912

PATIENT
  Age: 60 Year
  Sex: Male

DRUGS (1)
  1. METFORMIN [Suspect]
     Active Substance: METFORMIN HYDROCHLORIDE
     Indication: Product used for unknown indication
     Route: 065

REACTIONS (2)
  - Intentional overdose [Unknown]
  - Lactic acidosis [Unknown]
